FAERS Safety Report 9958755 (Version 1)
Quarter: 2014Q1

REPORT INFORMATION
  Report Type: Spontaneous
  Country: US (occurrence: None)
  Receive Date: 20140227
  Receipt Date: 20140227
  Transmission Date: 20141002
  Serious: Yes (Death, Hospitalization)
  Sender: FDA-Public Use
  Company Number: UTC-039309

PATIENT
  Age: 55 Year
  Sex: Female

DRUGS (1)
  1. REMODULIN [Suspect]
     Indication: PULMONARY ARTERIAL HYPERTENSION
     Dosage: 20.736 UG/KG (0.0144 UG/KG, 1 IN 1 MIN), SC
     Route: 058
     Dates: start: 20130605, end: 2014

REACTIONS (8)
  - Infection [None]
  - Decreased appetite [None]
  - Vomiting [None]
  - Diarrhoea [None]
  - Fluid retention [None]
  - Device related infection [None]
  - Dialysis [None]
  - Pulmonary arterial hypertension [None]
